FAERS Safety Report 8844680 (Version 2)
Quarter: 2012Q4

REPORT INFORMATION
  Report Type: Spontaneous
  Country: US (occurrence: None)
  Receive Date: 20121012
  Receipt Date: 20121115
  Transmission Date: 20130627
  Serious: Yes (Death, Hospitalization, Other)
  Sender: FDA-Public Use
  Company Number: 2012SGN00447

PATIENT
  Age: 95 Year
  Sex: Male

DRUGS (1)
  1. ADCETRIS [Suspect]
     Indication: HODGKIN^S LYMPHOMA
     Dates: start: 201203, end: 201205

REACTIONS (3)
  - Acute respiratory failure [None]
  - Sepsis [None]
  - Pneumonia aspiration [None]
